FAERS Safety Report 9364848 (Version 6)
Quarter: 2014Q3

REPORT INFORMATION
  Report Type: Spontaneous
  Country: US (occurrence: US)
  Receive Date: 20130624
  Receipt Date: 20140823
  Transmission Date: 20150326
  Serious: Yes (Hospitalization, Other)
  Sender: FDA-Public Use
  Company Number: US-009507513-1306USA011255

PATIENT
  Sex: Female
  Weight: 96.15 kg

DRUGS (1)
  1. NUVARING [Suspect]
     Active Substance: ETHINYL ESTRADIOL\ETONOGESTREL
     Indication: CONTRACEPTION
     Dosage: UNK
     Route: 067
     Dates: start: 200901, end: 20110708

REACTIONS (22)
  - Electrocardiogram ST-T segment abnormal [Unknown]
  - Deep vein thrombosis [Unknown]
  - Laceration [Unknown]
  - Hypothyroidism [Unknown]
  - Plantar fasciitis [Unknown]
  - Fall [Unknown]
  - Cardiac murmur [Unknown]
  - Acute sinusitis [Unknown]
  - Coagulopathy [Unknown]
  - Mammoplasty [Unknown]
  - Pulmonary embolism [Unknown]
  - Skin wound [Unknown]
  - Tooth disorder [Unknown]
  - Goitre [Unknown]
  - Dermatitis contact [Unknown]
  - Rash maculo-papular [Unknown]
  - Maternal exposure before pregnancy [Unknown]
  - Iron deficiency anaemia [Unknown]
  - Adverse drug reaction [Unknown]
  - Nasopharyngitis [Unknown]
  - Cough [Unknown]
  - Upper respiratory tract infection [Unknown]

NARRATIVE: CASE EVENT DATE: 20090428
